FAERS Safety Report 10514463 (Version 3)
Quarter: 2014Q4

REPORT INFORMATION
  Report Type: Spontaneous
  Country: US (occurrence: US)
  Receive Date: 20141013
  Receipt Date: 20141024
  Transmission Date: 20150528
  Serious: Yes (Hospitalization, Other)
  Sender: FDA-Public Use
  Company Number: US-TAKEDA-2014TUS009816

PATIENT
  Age: 69 Year
  Sex: Male
  Weight: 169.16 kg

DRUGS (7)
  1. MELATONIN [Concomitant]
     Active Substance: MELATONIN
     Indication: INSOMNIA
     Dosage: 1 MG, QHS
     Route: 065
  2. SIMVASTATIN. [Concomitant]
     Active Substance: SIMVASTATIN
     Indication: HYPERLIPIDAEMIA
     Dosage: UNK
  3. TRAZODONE [Concomitant]
     Active Substance: TRAZODONE HYDROCHLORIDE
     Indication: INSOMNIA
     Dosage: 50 MG, 1-2 QHS
     Route: 065
  4. NEURONTIN [Concomitant]
     Active Substance: GABAPENTIN
     Indication: ANXIETY
  5. BRINTELLIX [Suspect]
     Active Substance: VORTIOXETINE HYDROBROMIDE
     Indication: MAJOR DEPRESSION
     Dosage: 10 MG, QD
     Route: 048
     Dates: start: 20140902, end: 20140929
  6. METFORMIN [Concomitant]
     Active Substance: METFORMIN HYDROCHLORIDE
     Indication: DIABETES MELLITUS
     Dosage: UNK
  7. NEURONTIN [Concomitant]
     Active Substance: GABAPENTIN
     Indication: PAIN
     Dosage: 600 MG 1 BID (PAIN), 2.5 QHS (ANXIETY)
     Route: 065

REACTIONS (1)
  - Pancreatitis [Recovering/Resolving]

NARRATIVE: CASE EVENT DATE: 20140929
